FAERS Safety Report 5596746-2 (Version None)
Quarter: 2007Q4

REPORT INFORMATION
  Report Type: 
  Country: None (occurrence: None)
  Receive Date: 20071220
  Receipt Date: 20070724
  Transmission Date: 20080405
  Serious: Yes (Other)
  Sender: FDA-Public Use
  Company Number: US-JNJFOC-20070706105

PATIENT
  Age: 44 Year
  Sex: Female

DRUGS (1)
  1. ORTHO TRI-CYCLEN [Suspect]
     Indication: DRUG THERAPY
     Dosage: 1 DOSE  (S), 1 IN 1 DAY, ORAL
     Route: 048
     Dates: start: 20070101, end: 20070101

REACTIONS (2)
  - EMBOLISM [None]
  - OFF LABEL USE [None]
